FAERS Safety Report 21763056 (Version 1)
Quarter: 2022Q4

REPORT INFORMATION
  Report Type: Spontaneous
  Country: CN (occurrence: CN)
  Receive Date: 20221221
  Receipt Date: 20221221
  Transmission Date: 20230112
  Serious: Yes (Hospitalization)
  Sender: FDA-Public Use
  Company Number: CN-ELI_LILLY_AND_COMPANY-CN202212009366

PATIENT
  Age: 64 Year
  Sex: Male
  Weight: 80 kg

DRUGS (2)
  1. HUMALOG [Suspect]
     Active Substance: INSULIN LISPRO
     Indication: Diabetes mellitus
     Dosage: 12 U, TID
     Route: 058
     Dates: start: 2014
  2. INSULIN GLARGINE [Concomitant]
     Active Substance: INSULIN GLARGINE
     Indication: Product used for unknown indication

REACTIONS (8)
  - Cerebral infarction [Unknown]
  - Chronic kidney disease [Unknown]
  - Nephropathy [Unknown]
  - Nephrotic syndrome [Unknown]
  - Hypertension [Unknown]
  - Osteoporosis [Unknown]
  - Cerebral atrophy [Unknown]
  - Gout [Unknown]

NARRATIVE: CASE EVENT DATE: 20140101
